FAERS Safety Report 9713940 (Version 1)
Quarter: 2013Q4

REPORT INFORMATION
  Report Type: Spontaneous
  Country: US (occurrence: US)
  Receive Date: 20131126
  Receipt Date: 20131126
  Transmission Date: 20140711
  Serious: No
  Sender: FDA-Public Use
  Company Number: US-GILEAD-2008-0018157

PATIENT
  Sex: Female
  Weight: 113.4 kg

DRUGS (16)
  1. LETAIRIS [Suspect]
     Indication: PULMONARY ARTERIAL HYPERTENSION
     Route: 048
     Dates: start: 20080617
  2. REVATIO [Concomitant]
     Route: 048
  3. SINGULAIR [Concomitant]
     Route: 048
  4. ALDACTONE [Concomitant]
     Route: 048
  5. METOLAZONE [Concomitant]
     Route: 048
  6. TRAMADOL [Concomitant]
     Route: 048
  7. ASPIRIN [Concomitant]
     Route: 048
  8. TEMAZEPAM [Concomitant]
     Route: 048
  9. SOMA [Concomitant]
     Route: 048
  10. HYDROCODONE [Concomitant]
     Route: 048
  11. LEXAPRO [Concomitant]
     Route: 048
  12. OXYGEN [Concomitant]
     Route: 055
  13. LASIX [Concomitant]
     Route: 048
  14. ASA/CAFFEINE/BUTALBITAL [Concomitant]
     Route: 048
  15. SYNTHROID [Concomitant]
     Route: 048
  16. POTASSIUM CHLORIDE [Concomitant]
     Route: 048

REACTIONS (2)
  - Liver function test abnormal [Unknown]
  - Myalgia [Unknown]
